FAERS Safety Report 7688281-2 (Version None)
Quarter: 2011Q3

REPORT INFORMATION
  Report Type: 
  Country: None (occurrence: None)
  Receive Date: 20110817
  Receipt Date: 20110128
  Transmission Date: 20111222
  Serious: No
  Sender: FDA-Public Use
  Company Number: US-KINGPHARMUSA00001-K201100116

PATIENT
  Sex: Female

DRUGS (2)
  1. CYTOMEL [Suspect]
     Indication: HYPOTHYROIDISM
     Dosage: 5 MCG, QD
     Route: 048
     Dates: start: 20090101, end: 20110101
  2. CYTOMEL [Suspect]
     Indication: AUTOIMMUNE THYROIDITIS
     Dosage: 5 MCG, QD
     Route: 048
     Dates: start: 20110101, end: 20110127

REACTIONS (1)
  - DYSPEPSIA [None]
